FAERS Safety Report 17767099 (Version 3)
Quarter: 2021Q3

REPORT INFORMATION
  Report Type: Spontaneous
  Country: US (occurrence: US)
  Receive Date: 20200511
  Receipt Date: 20210921
  Transmission Date: 20211014
  Serious: Yes (Other)
  Sender: FDA-Public Use
  Company Number: US-PURDUE-USA-2020-0152720

PATIENT
  Age: 60 Year
  Sex: Male

DRUGS (6)
  1. OXYCODONE/ ACETAMINOPHEN TABLETS [Suspect]
     Active Substance: ACETAMINOPHEN\OXYCODONE HYDROCHLORIDE
     Indication: PAIN
     Dosage: 10/325 MG, DAILY
     Route: 048
     Dates: start: 2021, end: 2021
  2. LYRICA [Suspect]
     Active Substance: PREGABALIN
     Indication: HERPES ZOSTER
     Route: 048
  3. OXYCODONE AND ACETAMINOPHEN [Suspect]
     Active Substance: ACETAMINOPHEN\OXYCODONE HYDROCHLORIDE
     Indication: PAIN
     Dosage: 10/325 MG, DAILY
     Route: 048
     Dates: start: 2021, end: 2021
  4. OXYCODONE/ ACETAMINOPHEN TABLETS [Suspect]
     Active Substance: ACETAMINOPHEN\OXYCODONE HYDROCHLORIDE
     Indication: HERPES ZOSTER
     Dosage: 10/325MG, 3?4 TABLETS DAILY
     Route: 048
     Dates: start: 20200424
  5. OXYCODONE/ ACETAMINOPHEN TABLETS [Suspect]
     Active Substance: ACETAMINOPHEN\OXYCODONE HYDROCHLORIDE
     Dosage: 10?325 MG, DAILY
     Route: 048
     Dates: start: 2021, end: 2021
  6. LIDOCAINE                          /00033402/ [Suspect]
     Active Substance: LIDOCAINE
     Indication: HERPES ZOSTER
     Route: 062

REACTIONS (13)
  - Nerve injury [Unknown]
  - Abdominal pain upper [Unknown]
  - Pain [Unknown]
  - Wrist surgery [Unknown]
  - Burning sensation [Unknown]
  - Wrist fracture [Unknown]
  - Reaction to excipient [Unknown]
  - Abdominal discomfort [Unknown]
  - Accident at work [Unknown]
  - Arthritis [Unknown]
  - Asthenia [Recovered/Resolved]
  - Suicidal ideation [Recovered/Resolved]
  - Nausea [Unknown]

NARRATIVE: CASE EVENT DATE: 20200424
